FAERS Safety Report 8858616 (Version 1)
Quarter: 2012Q4

REPORT INFORMATION
  Report Type: 
  Country: US (occurrence: US)
  Receive Date: 20121024
  Receipt Date: 20121024
  Transmission Date: 20130627
  Serious: Yes (Death, Hospitalization)
  Sender: FDA-Public Use
  Company Number: US-ROCHE-1133439

PATIENT
  Sex: Male

DRUGS (4)
  1. RAPTIVA [Suspect]
     Indication: PSORIASIS
     Route: 065
  2. RAPTIVA [Suspect]
     Indication: PSORIATIC ARTHROPATHY
  3. RAPTIVA [Suspect]
     Indication: PUSTULAR PSORIASIS
  4. CYCLOSPORIN [Concomitant]

REACTIONS (5)
  - Death [Fatal]
  - Arthritis [Unknown]
  - Pain [Unknown]
  - Inflammation [Unknown]
  - Chronic obstructive pulmonary disease [Unknown]
